FAERS Safety Report 20105167 (Version 4)
Quarter: 2021Q4

REPORT INFORMATION
  Report Type: Spontaneous
  Country: US (occurrence: US)
  Receive Date: 20211124
  Receipt Date: 20211227
  Transmission Date: 20220303
  Serious: Yes (Other)
  Sender: FDA-Public Use
  Company Number: US-CELGENE-USA-20211105359

PATIENT
  Sex: Male
  Weight: 89.892 kg

DRUGS (2)
  1. REVLIMID [Suspect]
     Active Substance: LENALIDOMIDE
     Indication: Plasma cell myeloma
     Route: 048
     Dates: start: 202108
  2. ASPIRIN [Concomitant]
     Active Substance: ASPIRIN
     Indication: Product used for unknown indication
     Route: 065

REACTIONS (6)
  - Gallbladder disorder [Unknown]
  - Swelling [Unknown]
  - Chest discomfort [Unknown]
  - Toothache [Unknown]
  - Peripheral swelling [Unknown]
  - Constipation [Unknown]

NARRATIVE: CASE EVENT DATE: 20210101
